FAERS Safety Report 6344060-X (Version None)
Quarter: 2009Q3

REPORT INFORMATION
  Report Type: 
  Country: None (occurrence: None)
  Receive Date: 20090908
  Receipt Date: 20090814
  Transmission Date: 20100115
  Serious: Yes (Hospitalization)
  Sender: FDA-Public Use
  Company Number: US-BRISTOL-MYERS SQUIBB COMPANY-14734586

PATIENT
  Age: 66 Year
  Sex: Female
  Weight: 44 kg

DRUGS (11)
  1. CETUXIMAB [Suspect]
     Indication: NON-SMALL CELL LUNG CANCER
     Dosage: INTERRUPTED ON 23JUL09;RESTARTED ON 06AUG2009.
     Route: 042
     Dates: start: 20090423
  2. CARBOPLATIN [Suspect]
     Indication: NON-SMALL CELL LUNG CANCER
     Dosage: INTERRUPTED ON 16JUL09;RESTARTED ON 06AUG2009.
     Route: 042
     Dates: start: 20090423
  3. GEMCITABINE [Suspect]
     Indication: NON-SMALL CELL LUNG CANCER
     Dosage: INTERRUPTED ON 23JUL09;RESTARTED ON 06AUG2009.
     Route: 042
     Dates: start: 20090423
  4. NEUPOGEN [Suspect]
     Route: 065
     Dates: start: 20090724, end: 20090729
  5. XANAX [Concomitant]
     Route: 065
     Dates: start: 20090531
  6. ALBUTEROL [Concomitant]
     Route: 055
     Dates: start: 20010101, end: 20090815
  7. SINGULAIR [Concomitant]
     Route: 065
     Dates: start: 20000101, end: 20090813
  8. PRILOSEC [Concomitant]
     Route: 065
     Dates: start: 20090529
  9. WARFARIN SODIUM [Concomitant]
     Route: 065
     Dates: start: 20090422
  10. EMEND [Concomitant]
     Route: 065
     Dates: start: 20090422
  11. VICODIN [Concomitant]
     Route: 065
     Dates: start: 20090420

REACTIONS (1)
  - CHEST PAIN [None]
